FAERS Safety Report 4694413-0 (Version None)
Quarter: 2005Q2

REPORT INFORMATION
  Report Type: 
  Country: None (occurrence: None)
  Receive Date: 20050614
  Receipt Date: 20050315
  Transmission Date: 20051028
  Serious: No
  Sender: FDA-Public Use
  Company Number: USA050393306

PATIENT
  Age: 60 Year
  Sex: Male
  Weight: 100 kg

DRUGS (2)
  1. CIALIS [Suspect]
     Indication: ERECTILE DYSFUNCTION
     Dosage: 10 MG
     Dates: start: 20050305
  2. VITAMINS [Concomitant]

REACTIONS (1)
  - THERAPEUTIC RESPONSE DECREASED [None]
